FAERS Safety Report 19442030 (Version 1)
Quarter: 2021Q2

REPORT INFORMATION
  Report Type: Spontaneous
  Country: US (occurrence: US)
  Receive Date: 20210621
  Receipt Date: 20210621
  Transmission Date: 20210717
  Serious: No
  Sender: FDA-Public Use
  Company Number: US-TOLMAR, INC.-21US027202

PATIENT
  Age: 29 Year
  Sex: Male

DRUGS (1)
  1. KETOCONAZOLE. [Suspect]
     Active Substance: KETOCONAZOLE
     Indication: DANDRUFF
     Dosage: TWICE A WEEK
     Route: 061
     Dates: start: 202102, end: 202104

REACTIONS (3)
  - Pruritus [Recovered/Resolved]
  - Off label use [Unknown]
  - Skin exfoliation [Recovered/Resolved]

NARRATIVE: CASE EVENT DATE: 202102
